FAERS Safety Report 25952258 (Version 1)
Quarter: 2025Q4

REPORT INFORMATION
  Report Type: Report from Study
  Country: EU (occurrence: EU)
  Receive Date: 20251023
  Receipt Date: 20251023
  Transmission Date: 20260118
  Serious: Yes (Hospitalization, Other)
  Sender: BIOCON
  Company Number: EU-BIOCON BIOLOGICS LIMITED-BBL2025005626

PATIENT

DRUGS (10)
  1. HULIO [Suspect]
     Active Substance: ADALIMUMAB-FKJP
     Indication: Product used for unknown indication
     Dosage: 40 MILLIGRAM, Q2W
     Route: 065
     Dates: start: 20241021, end: 20241202
  2. HULIO [Suspect]
     Active Substance: ADALIMUMAB-FKJP
  3. HULIO [Suspect]
     Active Substance: ADALIMUMAB-FKJP
  4. HULIO [Suspect]
     Active Substance: ADALIMUMAB-FKJP
  5. HULIO [Suspect]
     Active Substance: ADALIMUMAB-FKJP
  6. METHOTREXATE [Suspect]
     Active Substance: METHOTREXATE
     Indication: Product used for unknown indication
     Dosage: 25 MILLIGRAM, QW
     Route: 065
     Dates: end: 20241216
  7. METHYLPREDNISOLONE [Concomitant]
     Active Substance: METHYLPREDNISOLONE
     Indication: Product used for unknown indication
     Dosage: 4 MILLIGRAM, QD
     Route: 065
  8. FOLIC ACID [Concomitant]
     Active Substance: FOLIC ACID
     Indication: Product used for unknown indication
     Dosage: UNK
     Route: 065
  9. CALCIUM CARBONATE [Concomitant]
     Active Substance: CALCIUM CARBONATE
     Indication: Product used for unknown indication
     Dosage: UNK
     Route: 065
  10. NIMESULIDE [Concomitant]
     Active Substance: NIMESULIDE
     Indication: Pain
     Dosage: UNK
     Route: 065

REACTIONS (9)
  - Hospitalisation [Recovering/Resolving]
  - Rheumatoid arthritis [Recovering/Resolving]
  - Laboratory test abnormal [Recovering/Resolving]
  - C-reactive protein increased [Recovering/Resolving]
  - Leukocytosis [Recovering/Resolving]
  - Polyarthritis [Recovering/Resolving]
  - Inflammatory marker increased [Recovering/Resolving]
  - Arthritis [Recovering/Resolving]
  - Drug ineffective [Recovering/Resolving]

NARRATIVE: CASE EVENT DATE: 20241216
